FAERS Safety Report 15492068 (Version 2)
Quarter: 2018Q4

REPORT INFORMATION
  Report Type: Spontaneous
  Country: US (occurrence: US)
  Receive Date: 20181012
  Receipt Date: 20181219
  Transmission Date: 20190205
  Serious: No
  Sender: FDA-Public Use
  Company Number: US-BIOGEN-2013BI101238

PATIENT
  Age: 56 Year
  Sex: Female

DRUGS (2)
  1. AVONEX [Suspect]
     Active Substance: INTERFERON BETA-1A
     Indication: MULTIPLE SCLEROSIS
     Route: 030
     Dates: start: 19990701
  2. AVONEX [Suspect]
     Active Substance: INTERFERON BETA-1A
     Route: 030

REACTIONS (23)
  - Tension [Unknown]
  - Thyroid function test abnormal [Unknown]
  - Neuropathy peripheral [Recovered/Resolved]
  - Injection site haemorrhage [Recovered/Resolved]
  - Bradyphrenia [Recovered/Resolved]
  - Cerebral disorder [Unknown]
  - Hypoacusis [Unknown]
  - Nervousness [Unknown]
  - Personality disorder [Unknown]
  - Feeling abnormal [Recovered/Resolved]
  - Balance disorder [Not Recovered/Not Resolved]
  - Aphasia [Not Recovered/Not Resolved]
  - Fatigue [Unknown]
  - Tremor [Recovered/Resolved]
  - Dizziness [Recovered/Resolved]
  - Influenza like illness [Recovered/Resolved]
  - Keloid scar [Recovered/Resolved]
  - Amnesia [Unknown]
  - Pain in extremity [Recovered/Resolved]
  - Muscular weakness [Unknown]
  - Underweight [Not Recovered/Not Resolved]
  - Gait disturbance [Not Recovered/Not Resolved]
  - Neuralgia [Not Recovered/Not Resolved]

NARRATIVE: CASE EVENT DATE: 19990701
